FAERS Safety Report 5081305-0 (Version None)
Quarter: 2006Q3

REPORT INFORMATION
  Report Type: 
  Country: None (occurrence: None)
  Receive Date: 20060810
  Receipt Date: 20060727
  Transmission Date: 20061208
  Serious: Yes (Other)
  Sender: FDA-Public Use
  Company Number: 2006PV018417

PATIENT
  Age: 71 Year
  Sex: Male
  Weight: 97.0698 kg

DRUGS (4)
  1. BYETTA [Suspect]
     Indication: DIABETES MELLITUS NON-INSULIN-DEPENDENT
     Dosage: SEE IMAGE
     Route: 058
     Dates: start: 20050728, end: 20050825
  2. BYETTA [Suspect]
     Indication: DIABETES MELLITUS NON-INSULIN-DEPENDENT
     Dosage: SEE IMAGE
     Route: 058
     Dates: start: 20050826
  3. PRANDIN [Suspect]
     Dosage: 0.5 MG; PO
     Route: 048
     Dates: start: 20050101, end: 20060327
  4. ACTOPLUS MET [Suspect]
     Dosage: 30 MG; PO
     Route: 048
     Dates: start: 20050101

REACTIONS (4)
  - BLOOD GLUCOSE DECREASED [None]
  - LOSS OF CONSCIOUSNESS [None]
  - TREMOR [None]
  - WEIGHT DECREASED [None]
